FAERS Safety Report 16601519 (Version 16)
Quarter: 2020Q4

REPORT INFORMATION
  Report Type: Report from Study
  Country: US (occurrence: US)
  Receive Date: 20190720
  Receipt Date: 20201209
  Transmission Date: 20210113
  Serious: Yes (Hospitalization, Other)
  Sender: FDA-Public Use
  Company Number: US-B.I. PHARMACEUTICALS,INC./RIDGEFIELD-2019-BI-018284

PATIENT
  Age: 80 Year
  Sex: Male

DRUGS (3)
  1. OFEV [Suspect]
     Active Substance: NINTEDANIB
  2. OFEV [Suspect]
     Active Substance: NINTEDANIB
     Indication: IDIOPATHIC PULMONARY FIBROSIS
     Dosage: 1 CAPSULE QD
     Route: 048
     Dates: start: 20190404
  3. OFEV [Suspect]
     Active Substance: NINTEDANIB
     Dosage: 1 PILL A DAY, TAKE 1 CAPSULE BY MOUTH ONCE A DAY WITH FOOD
     Route: 048
     Dates: start: 2019

REACTIONS (34)
  - Chest pain [Recovered/Resolved]
  - Fall [Recovering/Resolving]
  - Taste disorder [Recovered/Resolved]
  - Arthropathy [Unknown]
  - Ulcer [Not Recovered/Not Resolved]
  - Initial insomnia [Not Recovered/Not Resolved]
  - Thyroid mass [Unknown]
  - Fatigue [Unknown]
  - Hypertension [Unknown]
  - Abdominal discomfort [Unknown]
  - Hypoaesthesia [Unknown]
  - Hypotension [Not Recovered/Not Resolved]
  - Dyspnoea [Not Recovered/Not Resolved]
  - Musculoskeletal pain [Recovered/Resolved]
  - Weight decreased [Unknown]
  - Haemorrhage [Not Recovered/Not Resolved]
  - Blood pressure increased [Not Recovered/Not Resolved]
  - Gastrointestinal ulcer [Recovered/Resolved]
  - Cough [Unknown]
  - Laziness [Unknown]
  - Cardiac disorder [Not Recovered/Not Resolved]
  - Chest pain [Not Recovered/Not Resolved]
  - Weight decreased [Not Recovered/Not Resolved]
  - Decreased appetite [Not Recovered/Not Resolved]
  - Asthenia [Recovered/Resolved]
  - Respiratory tract congestion [Unknown]
  - Respiratory symptom [Not Recovered/Not Resolved]
  - Decreased appetite [Unknown]
  - Productive cough [Unknown]
  - Diarrhoea [Not Recovered/Not Resolved]
  - Dyspnoea [Unknown]
  - Clavicle fracture [Recovering/Resolving]
  - Dyspnoea exertional [Unknown]
  - Musculoskeletal pain [Unknown]

NARRATIVE: CASE EVENT DATE: 2020
